FAERS Safety Report 5280870-8 (Version None)
Quarter: 2007Q1

REPORT INFORMATION
  Report Type: 
  Country: None (occurrence: None)
  Receive Date: 20070329
  Receipt Date: 20070220
  Transmission Date: 20070707
  Serious: Yes (Life-Threatening)
  Sender: FDA-Public Use
  Company Number: DE-BOEHRINGER INGELHEIM GMBH, GERMANY-2007-DE-00908DE

PATIENT
  Sex: Female
  Weight: 61 kg

DRUGS (1)
  1. MICARDIS [Suspect]
     Indication: HYPERTENSION
     Route: 048

REACTIONS (2)
  - CARDIOVASCULAR DISORDER [None]
  - SYNCOPE [None]
